FAERS Safety Report 6100997-8 (Version None)
Quarter: 2009Q1

REPORT INFORMATION
  Report Type: 
  Country: None (occurrence: None)
  Receive Date: 20090304
  Receipt Date: 20090223
  Transmission Date: 20090719
  Serious: Yes (Hospitalization)
  Sender: FDA-Public Use
  Company Number: NO-AMGEN-UK329807

PATIENT
  Age: 49 Year
  Sex: Female

DRUGS (5)
  1. ARANESP [Suspect]
     Indication: ANAEMIA
     Route: 058
     Dates: start: 20081022, end: 20081122
  2. SANDIMMUNE [Concomitant]
     Route: 048
     Dates: start: 19960101
  3. TENORMIN [Concomitant]
     Route: 048
     Dates: start: 19960101
  4. ADALAT [Concomitant]
     Route: 048
     Dates: start: 20020101
  5. LOSARTAN [Concomitant]
     Route: 048
     Dates: start: 20070101

REACTIONS (4)
  - ERYTHEMA [None]
  - SKIN LESION [None]
  - SKIN SWELLING [None]
  - SYSTEMIC LUPUS ERYTHEMATOSUS RASH [None]
